FAERS Safety Report 6470424-X (Version None)
Quarter: 2009Q4

REPORT INFORMATION
  Report Type: 
  Country: None (occurrence: None)
  Receive Date: 20091119
  Receipt Date: 20090217
  Transmission Date: 20100525
  Serious: Yes (Hospitalization)
  Sender: FDA-Public Use
  Company Number: 2009-192133-NL

PATIENT
  Age: 23 Year
  Sex: Female
  Weight: 117 kg

DRUGS (1)
  1. IMPLANON [Suspect]
     Dosage: SUBDERMAL
     Route: 059
     Dates: start: 20071002, end: 20090216

REACTIONS (2)
  - CHEST PAIN [None]
  - DEEP VEIN THROMBOSIS [None]
